FAERS Safety Report 23082142 (Version 1)
Quarter: 2023Q4

REPORT INFORMATION
  Report Type: Report from Study
  Country: US (occurrence: US)
  Receive Date: 20231019
  Receipt Date: 20231019
  Transmission Date: 20240110
  Serious: No
  Sender: FDA-Public Use
  Company Number: US-DECIPHERA PHARMACEUTICALS LLC-2023US000876

PATIENT
  Age: 84 Year
  Sex: Male

DRUGS (1)
  1. QINLOCK [Suspect]
     Active Substance: RIPRETINIB
     Indication: Gastrointestinal stromal tumour
     Dosage: 150 MILLIGRAM, QD
     Route: 048
     Dates: start: 20230805

REACTIONS (8)
  - Joint swelling [Unknown]
  - Dry mouth [Unknown]
  - Dysarthria [Unknown]
  - Tongue dry [Unknown]
  - Pain in extremity [Unknown]
  - Dysgeusia [Unknown]
  - Fatigue [Unknown]
  - Abdominal pain [Unknown]
